FAERS Safety Report 18992834 (Version 1)
Quarter: 2021Q1

REPORT INFORMATION
  Report Type: Spontaneous
  Country: GB (occurrence: GB)
  Receive Date: 20210310
  Receipt Date: 20210310
  Transmission Date: 20210420
  Serious: Yes (Life-Threatening, Hospitalization, Other)
  Sender: FDA-Public Use
  Company Number: GB-GLAXOSMITHKLINE-GBCH2021GSK010953

PATIENT
  Age: 31 Year
  Sex: Female

DRUGS (4)
  1. OMEPRAZOLE. [Suspect]
     Active Substance: OMEPRAZOLE
     Indication: PRODUCT USED FOR UNKNOWN INDICATION
     Dosage: UNK
  2. IBUPROFEN. [Suspect]
     Active Substance: IBUPROFEN
     Indication: AFTERBIRTH PAIN
     Dosage: UNK
  3. METFORMIN [Suspect]
     Active Substance: METFORMIN HYDROCHLORIDE
     Indication: GESTATIONAL DIABETES
     Dosage: UNK
  4. DALTEPARIN [Concomitant]
     Active Substance: DALTEPARIN
     Indication: THROMBOSIS PROPHYLAXIS
     Dosage: UNK

REACTIONS (9)
  - Tachycardia [Unknown]
  - Gastric ulcer haemorrhage [Unknown]
  - Haematemesis [Unknown]
  - Gastric ulcer [Unknown]
  - Live birth [Unknown]
  - Upper gastrointestinal haemorrhage [Unknown]
  - Abdominal pain [Unknown]
  - Urinary incontinence [Unknown]
  - Exposure during pregnancy [Unknown]
